FAERS Safety Report 10977232 (Version 1)
Quarter: 2015Q1

REPORT INFORMATION
  Report Type: Spontaneous
  Country: CN (occurrence: None)
  Receive Date: 20150330
  Receipt Date: 20150330
  Transmission Date: 20150721
  Serious: Yes (Other)
  Sender: FDA-Public Use
  Company Number: CN-2015VAL000214

PATIENT
  Age: 61 Year
  Sex: Female

DRUGS (4)
  1. ROCALTROL [Suspect]
     Active Substance: CALCITRIOL
     Indication: HYPOPARATHYROIDISM
     Route: 048
     Dates: start: 201312
  2. SALCATONIN (CALCITONIN, SALMON) [Concomitant]
  3. CALTRATE [Suspect]
     Active Substance: CALCIUM CARBONATE
     Indication: HYPOPARATHYROIDISM
     Dates: start: 201312
  4. CALCIUM CARBONATE W/COLECALCIFEROL [Suspect]
     Active Substance: CALCIUM CARBONATE\CHOLECALCIFEROL
     Indication: HYPOPARATHYROIDISM
     Dates: start: 201312

REACTIONS (2)
  - Blood calcium decreased [None]
  - Nephrolithiasis [None]
